FAERS Safety Report 25064314 (Version 1)
Quarter: 2025Q1

REPORT INFORMATION
  Report Type: Spontaneous
  Country: DE (occurrence: DE)
  Receive Date: 20250311
  Receipt Date: 20250311
  Transmission Date: 20250409
  Serious: Yes (Hospitalization, Other)
  Sender: DR REDDYS
  Company Number: None

PATIENT
  Age: 32 Year
  Sex: Male

DRUGS (16)
  1. VALPROATE [Suspect]
     Active Substance: VALPROIC ACID
     Indication: Rasmussen encephalitis
  2. VALPROATE [Suspect]
     Active Substance: VALPROIC ACID
  3. LAMOTRIGINE [Suspect]
     Active Substance: LAMOTRIGINE
     Indication: Rasmussen encephalitis
  4. LACOSAMIDE [Suspect]
     Active Substance: LACOSAMIDE
     Indication: Rasmussen encephalitis
  5. LEVETIRACETAM [Suspect]
     Active Substance: LEVETIRACETAM
     Indication: Rasmussen encephalitis
  6. PHENYTOIN [Suspect]
     Active Substance: PHENYTOIN
     Indication: Rasmussen encephalitis
  7. OXCARBAZEPINE [Suspect]
     Active Substance: OXCARBAZEPINE
     Indication: Rasmussen encephalitis
  8. CLOBAZAM [Suspect]
     Active Substance: CLOBAZAM
     Indication: Rasmussen encephalitis
  9. PERAMPANEL [Suspect]
     Active Substance: PERAMPANEL
     Indication: Rasmussen encephalitis
  10. BRIVARACETAM [Suspect]
     Active Substance: BRIVARACETAM
     Indication: Rasmussen encephalitis
  11. PREDNISONE [Concomitant]
     Active Substance: PREDNISONE
     Indication: Rasmussen encephalitis
  12. AZATHIOPRINE [Concomitant]
     Active Substance: AZATHIOPRINE
     Indication: Rasmussen encephalitis
  13. METHOTREXATE [Concomitant]
     Active Substance: METHOTREXATE
     Indication: Rasmussen encephalitis
  14. MYCOPHENOLATE MOFETIL [Concomitant]
     Active Substance: MYCOPHENOLATE MOFETIL
     Indication: Rasmussen encephalitis
  15. HUMAN IMMUNOGLOBULIN G [Concomitant]
     Active Substance: HUMAN IMMUNOGLOBULIN G
     Indication: Rasmussen encephalitis
  16. ADALIMUMAB [Concomitant]
     Active Substance: ADALIMUMAB
     Indication: Rasmussen encephalitis

REACTIONS (5)
  - Hyperammonaemia [Unknown]
  - Postictal paralysis [Recovered/Resolved with Sequelae]
  - Drug ineffective for unapproved indication [Unknown]
  - Ataxia [Unknown]
  - Drug intolerance [Unknown]
